FAERS Safety Report 7090113-0 (Version None)
Quarter: 2010Q4

REPORT INFORMATION
  Report Type: 
  Country: None (occurrence: None)
  Receive Date: 20101109
  Receipt Date: 20100303
  Transmission Date: 20110411
  Serious: Yes (Other)
  Sender: FDA-Public Use
  Company Number: US-ASTRAZENECA-2009SE17943

PATIENT
  Sex: Male
  Weight: 98 kg

DRUGS (8)
  1. SEROQUEL [Suspect]
     Route: 048
     Dates: start: 20031007
  2. TRAZODONE HCL [Concomitant]
     Route: 048
     Dates: start: 20031004
  3. NEFAZODONE HCL [Concomitant]
     Route: 048
     Dates: start: 20031004
  4. GLIPIZIDE [Concomitant]
     Dosage: 2.5 TO 20 MG
     Route: 048
     Dates: start: 20060131
  5. SIMVASTATIN [Concomitant]
     Dosage: 10 MG TO 40 MG
     Route: 048
     Dates: start: 20060101
  6. ASPIRIN [Concomitant]
     Route: 048
     Dates: start: 20071114
  7. METFORMIN HCL [Concomitant]
     Dosage: 500 MG TO 2000 MG
     Dates: start: 20060131
  8. VARDENAFIL HYDROCHLORIDE (LEVITRA) [Concomitant]
     Dosage: PRN
     Dates: start: 20060131

REACTIONS (4)
  - DIABETES MELLITUS [None]
  - DIABETES MELLITUS INADEQUATE CONTROL [None]
  - ERECTILE DYSFUNCTION [None]
  - NEUROPATHY PERIPHERAL [None]
